FAERS Safety Report 4453724-4 (Version None)
Quarter: 2004Q3

REPORT INFORMATION
  Report Type: 
  Country: None (occurrence: None)
  Receive Date: 20040920
  Receipt Date: 20040728
  Transmission Date: 20050211
  Serious: Yes (Other)
  Sender: FDA-Public Use
  Company Number: PHBS2004BE09964

PATIENT
  Age: 49 Year
  Sex: Female

DRUGS (1)
  1. DIOVAN [Suspect]
     Dosage: 160 MG/DAY
     Route: 048
     Dates: start: 20010817, end: 20040524

REACTIONS (5)
  - BLOOD IRON DECREASED [None]
  - GASTRIC ULCER HELICOBACTER [None]
  - HAEMATOCRIT DECREASED [None]
  - IRON DEFICIENCY ANAEMIA [None]
  - TRANSFERRIN SATURATION DECREASED [None]
